FAERS Safety Report 5348833-1 (Version None)
Quarter: 2007Q2

REPORT INFORMATION
  Report Type: 
  Country: None (occurrence: None)
  Receive Date: 20070605
  Receipt Date: 20070523
  Transmission Date: 20071010
  Serious: Yes (Hospitalization)
  Sender: FDA-Public Use
  Company Number: 2007US001173

PATIENT
  Age: 12 Year
  Sex: Female
  Weight: 21.8 kg

DRUGS (18)
  1. PROGRAF [Suspect]
     Indication: KIDNEY TRANSPLANT REJECTION
     Dosage: SEE IMAGE
     Dates: start: 20050629
  2. DACLIZUMAB [Suspect]
     Indication: KIDNEY TRANSPLANT REJECTION
     Dosage: 21 MG, OTHER, IV NOS
     Route: 042
     Dates: start: 20050628, end: 20050628
  3. DACLIZUMAB [Suspect]
     Indication: KIDNEY TRANSPLANT REJECTION
     Dosage: 21 MG, OTHER, IV NOS
     Route: 042
     Dates: start: 20050629, end: 20050629
  4. DACLIZUMAB [Suspect]
     Indication: KIDNEY TRANSPLANT REJECTION
     Dosage: 21 MG, OTHER, IV NOS
     Route: 042
     Dates: start: 20050715, end: 20050715
  5. DACLIZUMAB [Suspect]
     Indication: KIDNEY TRANSPLANT REJECTION
     Dosage: 21 MG, OTHER, IV NOS
     Route: 042
     Dates: start: 20050729, end: 20050729
  6. DACLIZUMAB [Suspect]
     Indication: KIDNEY TRANSPLANT REJECTION
     Dosage: 21 MG, OTHER, IV NOS
     Route: 042
     Dates: start: 20050812, end: 20050812
  7. DACLIZUMAB [Suspect]
     Indication: KIDNEY TRANSPLANT REJECTION
     Dosage: 21 MG, OTHER, IV NOS
     Route: 042
     Dates: start: 20050826, end: 20050826
  8. DACLIZUMAB [Suspect]
     Indication: KIDNEY TRANSPLANT REJECTION
     Dosage: 21 MG, OTHER, IV NOS
     Route: 042
     Dates: start: 20050916, end: 20050916
  9. DACLIZUMAB [Suspect]
     Indication: KIDNEY TRANSPLANT REJECTION
     Dosage: 21 MG, OTHER, IV NOS
     Route: 042
     Dates: start: 20051014, end: 20051014
  10. DACLIZUMAB [Suspect]
     Indication: KIDNEY TRANSPLANT REJECTION
     Dosage: 21 MG, OTHER, IV NOS
     Route: 042
     Dates: start: 20051110, end: 20051110
  11. DACLIZUMAB [Suspect]
     Indication: KIDNEY TRANSPLANT REJECTION
     Dosage: 21 MG, OTHER, IV NOS
     Route: 042
     Dates: start: 20051213, end: 20051213
  12. CELLCEPT [Concomitant]
  13. VALGANCICLOVIR HCL [Concomitant]
  14. AMLODIPINE [Concomitant]
  15. FER-IN-SOL (FERROUS SULFATE) [Concomitant]
  16. SEPTRA [Concomitant]
  17. OMEPRAZOLE [Concomitant]
  18. FURADANTIN [Concomitant]

REACTIONS (6)
  - APHTHOUS STOMATITIS [None]
  - BLOOD PRESSURE DIASTOLIC DECREASED [None]
  - DRUG INEFFECTIVE [None]
  - IMMUNOSUPPRESSANT DRUG LEVEL INCREASED [None]
  - SUPERINFECTION BACTERIAL [None]
  - TREATMENT NONCOMPLIANCE [None]
